FAERS Safety Report 5999912-7 (Version None)
Quarter: 2008Q4

REPORT INFORMATION
  Report Type: 
  Country: None (occurrence: None)
  Receive Date: 20081215
  Receipt Date: 20081205
  Transmission Date: 20090506
  Serious: Yes (Death)
  Sender: FDA-Public Use
  Company Number: PHHY2008JP25010

PATIENT
  Sex: Female
  Weight: 35 kg

DRUGS (9)
  1. EXJADE [Suspect]
     Indication: IRON OVERLOAD
     Dosage: 625 MG
     Route: 048
     Dates: start: 20080714, end: 20080914
  2. EXJADE [Suspect]
     Indication: MYELODYSPLASTIC SYNDROME
  3. EXJADE [Suspect]
     Indication: HAEMOCHROMATOSIS
  4. FUROSEMIDE [Concomitant]
     Dosage: 40 MG, UNK
     Route: 048
  5. ALDACTONE [Concomitant]
     Dosage: 25 MG, UNK
     Route: 048
  6. ISOSORBIDE DINITRATE [Concomitant]
     Dosage: 40 MG, UNK
  7. RABEPRAZOLE SODIUM [Concomitant]
     Dosage: 20 MG, UNK
  8. BLOOD TRANSFUSION, AUXILIARY PRODUCTS [Concomitant]
     Dosage: IN TOTAL 128 UNTITS
     Dates: start: 20060426, end: 20080703
  9. BLOOD TRANSFUSION, AUXILIARY PRODUCTS [Concomitant]
     Dosage: 2 UNITS IRRADIATED RED CELLS CONCENTRATED EVERY THREE WEEKS
     Dates: start: 20080715, end: 20081003

REACTIONS (3)
  - CARDIAC FAILURE [None]
  - DEPRESSED LEVEL OF CONSCIOUSNESS [None]
  - GENERAL PHYSICAL HEALTH DETERIORATION [None]
